FAERS Safety Report 5100866-6 (Version None)
Quarter: 2006Q3

REPORT INFORMATION
  Report Type: 
  Country: None (occurrence: None)
  Receive Date: 20060911
  Receipt Date: 20060906
  Transmission Date: 20061208
  Serious: Yes (Other)
  Sender: FDA-Public Use
  Company Number: JP-BRACCO-BRO-010490

PATIENT
  Age: 70 Year
  Sex: Female

DRUGS (3)
  1. IOPAMIRON [Suspect]
     Indication: MYOCARDIAL INFARCTION
     Route: 013
  2. IOPAMIRON [Suspect]
     Indication: PERCUTANEOUS CORONARY INTERVENTION
     Route: 013
  3. IOPAMIRON [Suspect]
     Indication: ARTERIOGRAM CORONARY
     Route: 013

REACTIONS (2)
  - COMPUTERISED TOMOGRAM ABNORMAL [None]
  - GRAND MAL CONVULSION [None]
